FAERS Safety Report 25090271 (Version 1)
Quarter: 2025Q1

REPORT INFORMATION
  Report Type: Spontaneous
  Country: US (occurrence: US)
  Receive Date: 20250318
  Receipt Date: 20250318
  Transmission Date: 20250408
  Serious: Yes (Hospitalization, Other)
  Sender: ALKEM
  Company Number: None

PATIENT
  Age: 16 Year
  Sex: Male

DRUGS (5)
  1. TACROLIMUS [Interacting]
     Active Substance: TACROLIMUS
     Indication: Nephrotic syndrome
     Dosage: UNK, BID (2-3 MILLIGRAM TWICE DAILY)
     Route: 065
  2. PAXLOVID [Interacting]
     Active Substance: NIRMATRELVIR\RITONAVIR
     Indication: COVID-19
     Route: 065
  3. PAXLOVID [Interacting]
     Active Substance: NIRMATRELVIR\RITONAVIR
     Route: 065
  4. ATORVASTATIN [Concomitant]
     Active Substance: ATORVASTATIN
     Indication: Product used for unknown indication
     Route: 065
  5. LISINOPRIL AND HYDROCHLOROTHIAZIDE [Concomitant]
     Active Substance: HYDROCHLOROTHIAZIDE\LISINOPRIL
     Indication: Product used for unknown indication
     Route: 065

REACTIONS (14)
  - Toxicity to various agents [Recovered/Resolved]
  - Drug interaction [Recovered/Resolved]
  - Drug level above therapeutic [Recovered/Resolved]
  - Renal impairment [Recovered/Resolved]
  - Urine output decreased [Recovered/Resolved]
  - Abdominal discomfort [Recovered/Resolved]
  - Oliguria [Recovered/Resolved]
  - Tremor [Recovered/Resolved]
  - Glycosuria [Recovered/Resolved]
  - Nausea [Recovered/Resolved]
  - Vomiting [Recovered/Resolved]
  - Dizziness [Recovered/Resolved]
  - Chills [Recovered/Resolved]
  - COVID-19 [Recovered/Resolved]
